FAERS Safety Report 4620792-6 (Version None)
Quarter: 2005Q1

REPORT INFORMATION
  Report Type: 
  Country: None (occurrence: None)
  Receive Date: 20050325
  Receipt Date: 20050316
  Transmission Date: 20050727
  Serious: Yes (Hospitalization, Other)
  Sender: FDA-Public Use
  Company Number: 2005045769

PATIENT
  Age: 72 Year
  Sex: Female
  Weight: 113.3993 kg

DRUGS (3)
  1. LIPITOR [Suspect]
     Indication: BLOOD CHOLESTEROL INCREASED
     Dosage: 10 MG (10 MG, 1 IN 1 D), ORAL
     Route: 048
     Dates: end: 20050128
  2. ROSIGLITAZONE MALEATE [Concomitant]
  3. QUINAPRIL HCL [Concomitant]

REACTIONS (6)
  - ARTHRALGIA [None]
  - DYSSTASIA [None]
  - HYPOAESTHESIA [None]
  - MOBILITY DECREASED [None]
  - PAIN IN EXTREMITY [None]
  - WALKING AID USER [None]
